FAERS Safety Report 24556927 (Version 1)
Quarter: 2024Q4

REPORT INFORMATION
  Report Type: Report from Study
  Country: BE (occurrence: BE)
  Receive Date: 20241028
  Receipt Date: 20241028
  Transmission Date: 20250114
  Serious: Yes (Hospitalization, Other)
  Sender: GLAXOSMITHKLINE
  Company Number: None

PATIENT

DRUGS (35)
  1. EPOPROSTENOL SODIUM [Suspect]
     Active Substance: EPOPROSTENOL SODIUM
     Indication: Pulmonary arterial hypertension
     Dosage: 2 NG/KG, QD, TOTAL DAILY DOSE 2`
     Route: 042
     Dates: start: 20220705, end: 20220706
  2. EPOPROSTENOL SODIUM [Suspect]
     Active Substance: EPOPROSTENOL SODIUM
     Indication: Pulmonary arterial hypertension
     Dosage: 3 NG/KG, QD, TOTAL DAILY DOSE 3
     Route: 042
     Dates: start: 20220706, end: 20220708
  3. EPOPROSTENOL SODIUM [Suspect]
     Active Substance: EPOPROSTENOL SODIUM
     Dosage: 4 NG/KG, QD, TOTAL DAILY DOSE 4
     Route: 042
     Dates: start: 20220708, end: 20220718
  4. EPOPROSTENOL SODIUM [Suspect]
     Active Substance: EPOPROSTENOL SODIUM
     Dosage: 6 NG/KG, QD, TOTAL DAILY DOSE 6
     Route: 042
     Dates: start: 20220718, end: 20220725
  5. EPOPROSTENOL SODIUM [Suspect]
     Active Substance: EPOPROSTENOL SODIUM
     Dosage: 7 NG/KG, QD, TOTAL DAILY DOSE 7
     Route: 042
     Dates: start: 20220725, end: 20220801
  6. EPOPROSTENOL SODIUM [Suspect]
     Active Substance: EPOPROSTENOL SODIUM
     Dosage: 8 NG/KG, QD, TOTAL DAILY DOSE 8
     Route: 042
     Dates: start: 20220801, end: 20220926
  7. EPOPROSTENOL SODIUM [Suspect]
     Active Substance: EPOPROSTENOL SODIUM
     Dosage: 9 NG/KG, QD, TOTAL DAILY DOSE 9
     Route: 042
     Dates: start: 20220926, end: 20221004
  8. EPOPROSTENOL SODIUM [Suspect]
     Active Substance: EPOPROSTENOL SODIUM
     Dosage: 10 NG/KG, QD, TOTAL DAILY DOSE 10
     Route: 042
     Dates: start: 20221004
  9. EPOPROSTENOL SODIUM [Suspect]
     Active Substance: EPOPROSTENOL SODIUM
     Dosage: 10 NG/KG, QD
     Route: 042
     Dates: start: 20221004, end: 20230530
  10. EPOPROSTENOL SODIUM [Suspect]
     Active Substance: EPOPROSTENOL SODIUM
     Dosage: 9 NG/KG, QD
     Route: 042
     Dates: start: 20230530, end: 20230605
  11. EPOPROSTENOL SODIUM [Suspect]
     Active Substance: EPOPROSTENOL SODIUM
     Dosage: 7 NG/KG, QD
     Route: 042
     Dates: start: 20230605, end: 20230612
  12. EPOPROSTENOL SODIUM [Suspect]
     Active Substance: EPOPROSTENOL SODIUM
     Dosage: 5 NG/KG, QD
     Route: 042
     Dates: start: 20230612, end: 20230620
  13. EPOPROSTENOL SODIUM [Suspect]
     Active Substance: EPOPROSTENOL SODIUM
     Dosage: 4 NG/KG, QD
     Route: 042
     Dates: start: 20230620, end: 20230627
  14. EPOPROSTENOL SODIUM [Suspect]
     Active Substance: EPOPROSTENOL SODIUM
     Dosage: 3 NG/KG, QD
     Route: 042
     Dates: start: 20230627, end: 20230703
  15. EPOPROSTENOL SODIUM [Suspect]
     Active Substance: EPOPROSTENOL SODIUM
     Dosage: 2 NG/KG, QD
     Route: 042
     Dates: start: 20230703, end: 20230710
  16. EPOPROSTENOL SODIUM [Suspect]
     Active Substance: EPOPROSTENOL SODIUM
     Dosage: 1 NG/KG, QD
     Route: 042
     Dates: start: 20230710, end: 20230718
  17. MACITENTAN [Suspect]
     Active Substance: MACITENTAN
     Indication: Pulmonary arterial hypertension
     Dosage: 10 MG, QD
     Route: 048
     Dates: start: 20220707
  18. SELEXIPAG [Suspect]
     Active Substance: SELEXIPAG
     Indication: Pulmonary arterial hypertension
     Dosage: 400 ?G
     Route: 048
     Dates: start: 20230530, end: 20230605
  19. SELEXIPAG [Suspect]
     Active Substance: SELEXIPAG
     Dosage: 800 ?G
     Route: 048
     Dates: start: 20230605, end: 20230612
  20. SELEXIPAG [Suspect]
     Active Substance: SELEXIPAG
     Dosage: 1200 ?G
     Route: 048
     Dates: start: 20230612, end: 20230620
  21. SELEXIPAG [Suspect]
     Active Substance: SELEXIPAG
     Dosage: 1600 ?G
     Route: 048
     Dates: start: 20230620, end: 20230627
  22. SELEXIPAG [Suspect]
     Active Substance: SELEXIPAG
     Dosage: 2000 ?G
     Route: 048
     Dates: start: 20230627, end: 20230703
  23. SELEXIPAG [Suspect]
     Active Substance: SELEXIPAG
     Dosage: 2400 ?G
     Route: 048
     Dates: start: 20230703, end: 20230714
  24. SELEXIPAG [Suspect]
     Active Substance: SELEXIPAG
     Dosage: 2800 ?G
     Route: 048
     Dates: start: 20230714, end: 20230725
  25. SELEXIPAG [Suspect]
     Active Substance: SELEXIPAG
     Dosage: 3200 ?G
     Route: 048
     Dates: start: 20230725, end: 20230809
  26. SELEXIPAG [Suspect]
     Active Substance: SELEXIPAG
     Dosage: 2400 ?G
     Route: 048
     Dates: start: 20230809
  27. TADALAFIL [Concomitant]
     Active Substance: TADALAFIL
     Indication: Pulmonary arterial hypertension
     Dosage: UNK
     Route: 048
     Dates: start: 20220711, end: 20220829
  28. TADALAFIL [Concomitant]
     Active Substance: TADALAFIL
     Dosage: UNK
     Route: 048
     Dates: start: 20220829
  29. LOSARTAN [Concomitant]
     Active Substance: LOSARTAN
     Indication: Hypertension
     Dosage: UNK
     Route: 048
     Dates: start: 20211227
  30. AMLODIPINE [Concomitant]
     Active Substance: AMLODIPINE BESYLATE
     Indication: Hypertension
     Dosage: UNK
     Route: 048
     Dates: start: 20211227
  31. ALDACTONE [Concomitant]
     Active Substance: SPIRONOLACTONE
     Indication: Hypertension
     Dosage: UNK
     Route: 048
     Dates: start: 20220105
  32. ALDACTONE [Concomitant]
     Active Substance: SPIRONOLACTONE
     Dosage: 50 MG
     Route: 065
  33. GLICLAZIDE [Concomitant]
     Active Substance: GLICLAZIDE
     Indication: Type 2 diabetes mellitus
     Dosage: UNK
     Route: 048
     Dates: start: 20211227
  34. METFORMIN [Concomitant]
     Active Substance: METFORMIN HYDROCHLORIDE
     Indication: Type 2 diabetes mellitus
     Dosage: UNK
     Route: 048
     Dates: start: 20210829
  35. OXYGEN [Concomitant]
     Active Substance: OXYGEN
     Indication: Product used for unknown indication
     Dosage: UNK
     Route: 065

REACTIONS (18)
  - Catheterisation cardiac [Recovered/Resolved]
  - Intraductal papillary mucinous neoplasm [Recovered/Resolved]
  - Oxygen saturation decreased [Recovering/Resolving]
  - Right ventricular failure [Unknown]
  - Bifascicular block [Recovered/Resolved]
  - Diabetes mellitus [Not Recovered/Not Resolved]
  - Abdominal pain [Unknown]
  - Micturition frequency decreased [Unknown]
  - Weight increased [Recovered/Resolved]
  - Crepitations [Unknown]
  - Vomiting [Recovered/Resolved]
  - Prostatitis [Recovered/Resolved]
  - Headache [Unknown]
  - Diarrhoea [Recovered/Resolved with Sequelae]
  - Hyperglycaemia [Recovered/Resolved]
  - Flushing [Not Recovered/Not Resolved]
  - Nausea [Unknown]
  - Postoperative ileus [Recovered/Resolved]

NARRATIVE: CASE EVENT DATE: 20220816
